FAERS Safety Report 12897652 (Version 1)
Quarter: 2016Q4

REPORT INFORMATION
  Report Type: Other
  Country: None (occurrence: US)
  Receive Date: 20161031
  Receipt Date: 20161031
  Transmission Date: 20170207
  Serious: Yes (Other)
  Sender: FDA-Public Use
  Company Number: US-GUTHY-RENKER LLC-1059071

PATIENT
  Age: 59 Year
  Sex: Female

DRUGS (3)
  1. PRESCRIPTION FOLIC ACID, PRESCRIPTION VITAMIN D [Concomitant]
  2. OTC:  VITAMIN B12, VIT C, AND A  MULTIVITAMIN [Concomitant]
  3. IT COSMETICS BYE BYE FOUNDATION SPF 50+ [Suspect]
     Active Substance: TITANIUM DIOXIDE\ZINC OXIDE
     Indication: PROPHYLAXIS AGAINST SOLAR RADIATION
     Route: 061
     Dates: start: 20160928, end: 20161006

REACTIONS (2)
  - Infection [None]
  - Application site vesicles [Recovered/Resolved]

NARRATIVE: CASE EVENT DATE: 20161006
